FAERS Safety Report 23935981 (Version 1)
Quarter: 2024Q2

REPORT INFORMATION
  Report Type: Spontaneous
  Country: BE (occurrence: BE)
  Receive Date: 20240604
  Receipt Date: 20240604
  Transmission Date: 20240715
  Serious: Yes (Life-Threatening)
  Sender: FDA-Public Use
  Company Number: None

PATIENT
  Age: 53 Year
  Sex: Male
  Weight: 75 kg

DRUGS (18)
  1. CYMBALTA [Suspect]
     Active Substance: DULOXETINE HYDROCHLORIDE
     Indication: Product used for unknown indication
     Dosage: 30 MG, DAILY
     Route: 065
     Dates: start: 200802
  2. CYMBALTA [Suspect]
     Active Substance: DULOXETINE HYDROCHLORIDE
     Dosage: 60 MG, DAILY
     Route: 065
  3. CYMBALTA [Suspect]
     Active Substance: DULOXETINE HYDROCHLORIDE
     Dosage: UNK, UNKNOWN (REDUCED)
     Dates: end: 2015
  4. CYMBALTA [Suspect]
     Active Substance: DULOXETINE HYDROCHLORIDE
     Dosage: UNK, UNKNOWN
     Dates: end: 2019
  5. DULOXETINE HYDROCHLORIDE [Suspect]
     Active Substance: DULOXETINE HYDROCHLORIDE
     Indication: Depression
     Dosage: 60 MG, DAILY
     Route: 048
     Dates: start: 2015
  6. DULOXETINE HYDROCHLORIDE [Suspect]
     Active Substance: DULOXETINE HYDROCHLORIDE
     Dosage: 30 MG, DAILY
     Route: 048
     Dates: start: 2016, end: 201911
  7. OMEPRAZOLE [Concomitant]
     Active Substance: DONEPEZIL HYDROCHLORIDE\OMEPRAZOLE\OMEPRAZOLE MAGNESIUM
     Indication: Product used for unknown indication
     Dosage: 2 DOSAGE FORM, DAILY (UPON HOSPITAL DISCHARGE)
     Route: 065
     Dates: start: 2008
  8. ZYPREXA [Concomitant]
     Active Substance: OLANZAPINE
     Indication: Product used for unknown indication
     Dosage: 0.25 DOSAGE FORM, DAILY
     Route: 065
     Dates: start: 2014
  9. TRANXENE [Concomitant]
     Active Substance: CLORAZEPATE DIPOTASSIUM
     Indication: Product used for unknown indication
     Dosage: 18 MG, DAILY (UPON HOSPITAL DISCHARGE)
     Route: 065
     Dates: start: 2008
  10. MEBEVERINE [Concomitant]
     Active Substance: MEBEVERINE
     Indication: Product used for unknown indication
     Dosage: 3 DOSAGE FORM, DAILY (UPON HOSPITAL DISCHARGE)
     Route: 065
     Dates: start: 2008
  11. XYLOMETAZOLINE HYDROCHLORIDE [Concomitant]
     Active Substance: XYLOMETAZOLINE HYDROCHLORIDE
     Indication: Product used for unknown indication
     Dosage: UNK, UNKNOWN (UPON HOSPITAL DISCHARGE)
     Route: 065
     Dates: start: 2008
  12. TRAZODONE HYDROCHLORIDE [Concomitant]
     Active Substance: TRAZODONE HYDROCHLORIDE
     Indication: Product used for unknown indication
     Dosage: 1 DOSAGE FORM, DAILY
     Route: 065
     Dates: start: 2014
  13. TRAZODONE HYDROCHLORIDE [Concomitant]
     Active Substance: TRAZODONE HYDROCHLORIDE
     Indication: Product used for unknown indication
     Dosage: 1 DOSAGE FORM, DAILY (UPON HOSPITAL DISCHARGE)
     Route: 065
     Dates: start: 2008
  14. SERTRALINE [Concomitant]
     Active Substance: SERTRALINE HYDROCHLORIDE
     Indication: Product used for unknown indication
     Dosage: 1 DOSAGE FORM, DAILY
     Route: 065
     Dates: start: 2014
  15. PRAZEPAM [Concomitant]
     Active Substance: PRAZEPAM
     Indication: Product used for unknown indication
     Dosage: 2 DOSAGE FORM, DAILY (DAILYUPON HOSPITAL DISCHARGE)
     Route: 065
     Dates: start: 2008
  16. SEDANXIO [Concomitant]
     Indication: Product used for unknown indication
     Dosage: UNK, UNKNOWN (UPON HOSPITAL DISCHARGE)
     Route: 065
     Dates: start: 2008
  17. PENTASA [Concomitant]
     Active Substance: MESALAMINE
     Indication: Product used for unknown indication
     Dosage: 1 DOSAGE FORM, DAILY (UPON HOSPITAL DISCHARGE)
     Route: 065
     Dates: start: 2008
  18. NOVOLIZER [Concomitant]
     Indication: Product used for unknown indication
     Dosage: 2 DOSAGE FORM (PUFF), DAILY (UPON HOSPITAL DISCHARGE)
     Route: 065
     Dates: start: 2008

REACTIONS (3)
  - Pain [Recovering/Resolving]
  - Withdrawal syndrome [Recovering/Resolving]
  - Pain [Recovering/Resolving]
